FAERS Safety Report 7875553-1 (Version None)
Quarter: 2011Q4

REPORT INFORMATION
  Report Type: 
  Country: None (occurrence: None)
  Receive Date: 20111031
  Receipt Date: 20110825
  Transmission Date: 20120403
  Serious: Yes (Other)
  Sender: FDA-Public Use
  Company Number: JP-AMGEN-JPNSP2011036743

PATIENT
  Age: 70 Year
  Sex: Female

DRUGS (8)
  1. ROMIPLATE [Suspect]
     Indication: IDIOPATHIC THROMBOCYTOPENIC PURPURA
     Dosage: 1 MUG/KG, UNK
     Route: 058
     Dates: start: 20110421, end: 20110511
  2. ROMIPLATE [Suspect]
     Dosage: 2 MUG/KG, UNK
     Route: 058
     Dates: start: 20110825
  3. ROMIPLATE [Suspect]
     Dosage: 2 MUG/KG, UNK
     Route: 058
     Dates: start: 20110512, end: 20110525
  4. ROMIPLATE [Suspect]
     Dosage: 3 MUG/KG, UNK
     Route: 058
     Dates: start: 20110526, end: 20110615
  5. ROMIPLATE [Suspect]
     Dosage: 1 MUG/KG, UNK
     Dates: start: 20110811
  6. ROMIPLATE [Suspect]
     Dosage: 4 MUG/KG, UNK
     Route: 058
     Dates: start: 20110616, end: 20110714
  7. PREDNISOLONE [Concomitant]
     Dosage: 10 MG, UNK
     Route: 048
     Dates: start: 20100901
  8. PREDNISOLONE [Concomitant]
     Dosage: 5 MG, UNK
     Route: 048
     Dates: start: 20101101, end: 20110428

REACTIONS (4)
  - PLATELET COUNT ABNORMAL [None]
  - PETECHIAE [None]
  - PURPURA [None]
  - ANTIBODY TEST [None]
